FAERS Safety Report 21957614 (Version 2)
Quarter: 2023Q1

REPORT INFORMATION
  Report Type: Spontaneous
  Country: GB (occurrence: GB)
  Receive Date: 20230206
  Receipt Date: 20230217
  Transmission Date: 20230418
  Serious: Yes (Other)
  Sender: FDA-Public Use
  Company Number: GB-TEVA-2023-GB-2852294

PATIENT
  Age: 6 Month
  Weight: 6 kg

DRUGS (7)
  1. PROPRANOLOL [Suspect]
     Active Substance: PROPRANOLOL HYDROCHLORIDE
     Indication: Product used for unknown indication
     Dosage: CONTAINS ALCOHOL AS EXCIPIENT, SOLUTION
     Route: 048
  2. CHLORPHENIRAMINE MALEATE [Suspect]
     Active Substance: CHLORPHENIRAMINE MALEATE
     Indication: Product used for unknown indication
     Dosage: CONTAINS ALCOHOL AS EXCIPIENT, SOLUTION
     Route: 048
  3. COTRIMOXAZOLE [Suspect]
     Active Substance: SULFAMETHOXAZOLE\TRIMETHOPRIM
     Indication: Product used for unknown indication
     Dosage: CONTAINS ALCOHOL AS EXCIPIENT, SOLUTION
     Route: 048
  4. FUROSEMIDE [Suspect]
     Active Substance: FUROSEMIDE
     Indication: Product used for unknown indication
     Dosage: CONTAINS ALCOHOL AS EXCIPIENT, SOLUTION
     Route: 048
  5. MORPHINE [Suspect]
     Active Substance: MORPHINE
     Indication: Product used for unknown indication
     Dosage: CONTAINS ALCOHOL AS EXCIPIENT, SOLUTION
     Route: 048
  6. RANITIDINE [Suspect]
     Active Substance: RANITIDINE
     Indication: Product used for unknown indication
     Dosage: CONTAINS ALCOHOL AS EXCIPIENT, SOLUTION
     Route: 048
  7. ALCOHOL [Suspect]
     Active Substance: ALCOHOL
     Indication: Vehicle solution use
     Dosage: THIS TOTALLED 1,197 MG OF ETHANOL PER DAY, SIGNIFICANTLY EXCEEDING RECOMMENDED INTAKE 36 MG/DAY, SOL
     Route: 048

REACTIONS (6)
  - Hypothermia [Unknown]
  - Hypoglycaemia [Unknown]
  - Hypotonia [Unknown]
  - Lactic acidosis [Unknown]
  - Alcohol poisoning [Unknown]
  - Reaction to excipient [Unknown]
